FAERS Safety Report 25050573 (Version 1)
Quarter: 2025Q1

REPORT INFORMATION
  Report Type: Spontaneous
  Country: CA (occurrence: CA)
  Receive Date: 20250307
  Receipt Date: 20250307
  Transmission Date: 20250409
  Serious: Yes (Other)
  Sender: CHATTEM
  Company Number: CA-SA-2022SA080161

PATIENT
  Age: 40 Year
  Sex: Female

DRUGS (8)
  1. ZANTAC 75 [Suspect]
     Active Substance: RANITIDINE HYDROCHLORIDE
     Indication: Hypersensitivity
     Dosage: DOSE DESCRIPTION : 1 DF, QD
     Route: 048
     Dates: start: 201708
  2. LORATADINE [Suspect]
     Active Substance: LORATADINE
     Indication: Product used for unknown indication
     Route: 065
  3. OMALIZUMAB [Suspect]
     Active Substance: OMALIZUMAB
     Indication: Chronic spontaneous urticaria
     Dosage: DOSE DESCRIPTION : 300 MG, QM
     Route: 058
     Dates: start: 20180412
  4. ADVAIR HFA [Concomitant]
     Active Substance: FLUTICASONE PROPIONATE\SALMETEROL XINAFOATE
     Indication: Chronic spontaneous urticaria
     Dosage: 2 DF, BID
     Route: 055
     Dates: start: 2013
  5. CICLESONIDE [Concomitant]
     Active Substance: CICLESONIDE
     Indication: Asthma
     Dosage: DOSE DESCRIPTION : 2 DF, QD
     Route: 045
     Dates: start: 2012
  6. METHYLPHENIDATE [Concomitant]
     Active Substance: METHYLPHENIDATE
     Indication: Depression
     Route: 048
     Dates: start: 2002
  7. OLOPATADINE [Concomitant]
     Active Substance: OLOPATADINE
     Indication: Chronic spontaneous urticaria
     Dosage: DOSE DESCRIPTION : 1 DF, QD
     Route: 047
     Dates: start: 2015
  8. VENTOLIN [Concomitant]
     Active Substance: ALBUTEROL SULFATE
     Indication: Asthma
     Route: 055

REACTIONS (5)
  - Urticaria [Not Recovered/Not Resolved]
  - Pneumonia [Not Recovered/Not Resolved]
  - Throat tightness [Not Recovered/Not Resolved]
  - Hypersensitivity [Not Recovered/Not Resolved]
  - Therapeutic response decreased [Unknown]

NARRATIVE: CASE EVENT DATE: 20180607
